FAERS Safety Report 7032302-7 (Version None)
Quarter: 2010Q4

REPORT INFORMATION
  Report Type: 
  Country: None (occurrence: None)
  Receive Date: 20101007
  Receipt Date: 20100928
  Transmission Date: 20110411
  Serious: Yes (Hospitalization)
  Sender: FDA-Public Use
  Company Number: US-ASTRAZENECA-2010SE45631

PATIENT
  Age: 76 Year
  Sex: Female

DRUGS (10)
  1. SEROQUEL [Suspect]
     Indication: DEPRESSION
     Route: 048
     Dates: start: 20100920
  2. SEROQUEL [Suspect]
     Indication: BIPOLAR DISORDER
     Route: 048
     Dates: start: 20100920
  3. LIPITOR [Concomitant]
  4. AMITRIPTYLINE [Concomitant]
  5. VIT B12 [Concomitant]
  6. ASPIRIN [Concomitant]
  7. LOVAZA [Concomitant]
  8. FLAX SEED [Concomitant]
  9. GINKO BALOBA [Concomitant]
  10. FOLIC ACID [Concomitant]

REACTIONS (1)
  - THROAT TIGHTNESS [None]
